FAERS Safety Report 16941798 (Version 1)
Quarter: 2019Q4

REPORT INFORMATION
  Report Type: Spontaneous
  Country: US (occurrence: US)
  Receive Date: 20190829
  Receipt Date: 20190829
  Transmission Date: 20200122
  Serious: Yes (Death)
  Sender: FDA-Public Use
  Company Number: None

PATIENT
  Age: 93 Year
  Sex: Male

DRUGS (12)
  1. ESBRIET [Suspect]
     Active Substance: PIRFENIDONE
     Indication: IDIOPATHIC PULMONARY FIBROSIS
     Route: 048
     Dates: start: 20190712
  2. LEVOTHYROXIN [Concomitant]
     Active Substance: LEVOTHYROXINE
  3. MULTIPLE VIT [Concomitant]
  4. FLOMAX [Concomitant]
     Active Substance: TAMSULOSIN HYDROCHLORIDE
  5. GABAPENTIN. [Concomitant]
     Active Substance: GABAPENTIN
  6. LANSOPRA [Concomitant]
  7. LASIX [Concomitant]
     Active Substance: FUROSEMIDE
  8. NITROSTAT [Concomitant]
     Active Substance: NITROGLYCERIN
  9. ZOLE [Concomitant]
  10. PRESERVISION [Concomitant]
     Active Substance: MINERALS\VITAMINS
  11. FINASTERIDE. [Concomitant]
     Active Substance: FINASTERIDE
  12. LOSARTIN [Concomitant]
     Active Substance: LOSARTAN

REACTIONS (1)
  - Death [None]

NARRATIVE: CASE EVENT DATE: 20190829
